FAERS Safety Report 5525133-8 (Version None)
Quarter: 2007Q4

REPORT INFORMATION
  Report Type: 
  Country: None (occurrence: None)
  Receive Date: 20071126
  Receipt Date: 20071113
  Transmission Date: 20080405
  Serious: Yes (Hospitalization, Other)
  Sender: FDA-Public Use
  Company Number: US-BAYER-200713702BWH

PATIENT
  Age: 49 Year
  Sex: Male

DRUGS (8)
  1. AVELOX [Suspect]
     Indication: PHARYNGOLARYNGEAL PAIN
     Route: 048
     Dates: start: 20070901, end: 20070930
  2. STEROID PACK [Suspect]
     Indication: PHARYNGOLARYNGEAL PAIN
     Route: 048
     Dates: start: 20070901, end: 20070927
  3. PREDNISONE TAB [Concomitant]
     Indication: PHARYNGOLARYNGEAL PAIN
     Route: 048
  4. LIPITOR [Concomitant]
     Indication: HYPERLIPIDAEMIA
     Dates: end: 20071003
  5. METFORMIN HCL [Concomitant]
     Indication: DIABETES MELLITUS
     Dates: end: 20071003
  6. DIOVAN [Concomitant]
     Indication: HYPERTENSION
     Dates: end: 20071003
  7. ADVIL LIQUI-GELS [Concomitant]
     Route: 048
  8. TYLENOL [Concomitant]
     Route: 048

REACTIONS (12)
  - ANOREXIA [None]
  - BLOOD CREATININE INCREASED [None]
  - CANDIDIASIS [None]
  - DRUG HYPERSENSITIVITY [None]
  - DRY MOUTH [None]
  - DYSPNOEA [None]
  - HEPATIC FUNCTION ABNORMAL [None]
  - MENTAL DISORDER [None]
  - NIGHT SWEATS [None]
  - PYREXIA [None]
  - RASH GENERALISED [None]
  - RENAL FAILURE ACUTE [None]
